FAERS Safety Report 4819069-5 (Version None)
Quarter: 2005Q4

REPORT INFORMATION
  Report Type: 
  Country: None (occurrence: None)
  Receive Date: 20051103
  Receipt Date: 20051025
  Transmission Date: 20060501
  Serious: Yes (Death)
  Sender: FDA-Public Use
  Company Number: JP-AVENTIS-200513125JP

PATIENT
  Age: 70 Year

DRUGS (2)
  1. LASIX [Suspect]
     Indication: OEDEMA
  2. LASIX [Suspect]
     Indication: OLIGURIA

REACTIONS (1)
  - CARDIAC FAILURE ACUTE [None]
